FAERS Safety Report 10908189 (Version 1)
Quarter: 2015Q1

REPORT INFORMATION
  Report Type: Spontaneous
  Country: GB (occurrence: GB)
  Receive Date: 20150312
  Receipt Date: 20150312
  Transmission Date: 20150721
  Serious: Yes (Other)
  Sender: FDA-Public Use
  Company Number: GB-PFIZER INC-2015087915

PATIENT
  Age: 47 Year
  Sex: Female

DRUGS (6)
  1. VENLAFAXINE HCL [Suspect]
     Active Substance: VENLAFAXINE HYDROCHLORIDE
     Dosage: 150 MG, 1X/DAY
     Dates: start: 201406
  2. VENLAFAXINE HCL [Suspect]
     Active Substance: VENLAFAXINE HYDROCHLORIDE
     Dosage: 75 MG, DAILY
  3. OLANZAPINE. [Concomitant]
     Active Substance: OLANZAPINE
     Dosage: 10 MG, UNK
     Dates: start: 201410
  4. RISPERIDONE. [Concomitant]
     Active Substance: RISPERIDONE
     Dosage: UNK
     Dates: end: 201408
  5. VENLAFAXINE HCL [Suspect]
     Active Substance: VENLAFAXINE HYDROCHLORIDE
     Indication: DEPRESSION
     Dosage: 75 MG, 1X/DAY
     Dates: end: 201406
  6. OLANZAPINE. [Concomitant]
     Active Substance: OLANZAPINE
     Dosage: 5 MG, UNK
     Dates: start: 201408, end: 201410

REACTIONS (13)
  - Seizure [Recovered/Resolved]
  - Weight decreased [Unknown]
  - Chorea [Unknown]
  - Hypoxia [Recovered/Resolved]
  - Gastric disorder [Unknown]
  - Myoclonus [Recovered/Resolved]
  - Muscle atrophy [Unknown]
  - Tremor [Recovered/Resolved]
  - Chills [Recovered/Resolved]
  - Skin infection [Unknown]
  - Pyrexia [Recovered/Resolved]
  - Skin abrasion [Unknown]
  - Dyskinesia [Recovered/Resolved]

NARRATIVE: CASE EVENT DATE: 201501
